FAERS Safety Report 16911772 (Version 1)
Quarter: 2019Q4

REPORT INFORMATION
  Report Type: Spontaneous
  Country: FR (occurrence: FR)
  Receive Date: 20191014
  Receipt Date: 20191014
  Transmission Date: 20200122
  Serious: Yes (Hospitalization)
  Sender: FDA-Public Use
  Company Number: FR-SA-2019SA277210

PATIENT
  Age: 57 Year
  Sex: Female

DRUGS (3)
  1. IODIXANOL. [Suspect]
     Active Substance: IODIXANOL
     Indication: ANGIOGRAM CEREBRAL
     Dosage: 1 DF, QD
     Route: 042
     Dates: start: 20190717, end: 20190717
  2. XENETIX [Suspect]
     Active Substance: IOBITRIDOL
     Indication: COMPUTERISED TOMOGRAM
     Dosage: 1 DF, UNK
     Route: 042
     Dates: start: 20190712, end: 20190712
  3. LOVENOX [Suspect]
     Active Substance: ENOXAPARIN SODIUM
     Indication: DEEP VEIN THROMBOSIS
     Dosage: 2 DF, QD
     Route: 058
     Dates: start: 20190710, end: 20190722

REACTIONS (1)
  - Rash maculo-papular [Recovered/Resolved]

NARRATIVE: CASE EVENT DATE: 20190721
